FAERS Safety Report 19711128 (Version 4)
Quarter: 2022Q1

REPORT INFORMATION
  Report Type: Spontaneous
  Country: US (occurrence: US)
  Receive Date: 20210817
  Receipt Date: 20220131
  Transmission Date: 20220423
  Serious: Yes (Other)
  Sender: FDA-Public Use
  Company Number: US-PFIZER INC-202101027771

PATIENT
  Age: 55 Year
  Sex: Female

DRUGS (3)
  1. XELJANZ [Suspect]
     Active Substance: TOFACITINIB CITRATE
     Indication: Colitis ulcerative
     Dosage: 10 MG
     Dates: start: 2019
  2. XELJANZ [Suspect]
     Active Substance: TOFACITINIB CITRATE
     Dosage: 10 MG, 2X/DAY
     Route: 048
     Dates: start: 202105
  3. XELJANZ [Suspect]
     Active Substance: TOFACITINIB CITRATE
     Dosage: 5 MG
     Route: 048
     Dates: start: 202105

REACTIONS (10)
  - Malignant melanoma stage IV [Unknown]
  - Rectal haemorrhage [Unknown]
  - Condition aggravated [Unknown]
  - Product dose omission issue [Unknown]
  - Arthralgia [Unknown]
  - Depressed mood [Unknown]
  - Influenza [Unknown]
  - Poor quality sleep [Unknown]
  - Frequent bowel movements [Unknown]
  - Stress [Unknown]
